FAERS Safety Report 11817402 (Version 4)
Quarter: 2016Q2

REPORT INFORMATION
  Report Type: Spontaneous
  Country: US (occurrence: US)
  Receive Date: 20151210
  Receipt Date: 20160513
  Transmission Date: 20160815
  Serious: No
  Sender: FDA-Public Use
  Company Number: US-JNJFOC-20151123526

PATIENT
  Sex: Male

DRUGS (12)
  1. ZYPREXA [Suspect]
     Active Substance: OLANZAPINE
     Indication: PARANOIA
     Dosage: 5 MG AND 10 MG TABLETS
     Route: 048
     Dates: start: 20070206, end: 20070610
  2. SEROQUEL [Suspect]
     Active Substance: QUETIAPINE FUMARATE
     Indication: PARANOIA
     Dosage: VARYING DOSES 5 - 10 MG
     Route: 048
     Dates: start: 200901, end: 201011
  3. INVEGA [Suspect]
     Active Substance: PALIPERIDONE
     Indication: PARANOIA
     Dosage: VARYING DOSES 3 AND 9 MG
     Route: 048
     Dates: start: 200809, end: 200903
  4. ZYPREXA [Suspect]
     Active Substance: OLANZAPINE
     Indication: BIPOLAR DISORDER
     Dosage: 5 MG AND 10 MG TABLETS
     Route: 048
     Dates: start: 20070206, end: 20070610
  5. RISPERDAL [Suspect]
     Active Substance: RISPERIDONE
     Indication: PARANOIA
     Dosage: VARYING DOSES 0.5 AND 1 MG
     Route: 048
     Dates: start: 200509, end: 200807
  6. INVEGA [Suspect]
     Active Substance: PALIPERIDONE
     Indication: BIPOLAR DISORDER
     Dosage: VARYING DOSES 3 AND 9 MG
     Route: 048
     Dates: start: 200809, end: 200903
  7. RISPERDAL M-TAB [Suspect]
     Active Substance: RISPERIDONE
     Indication: PRODUCT USED FOR UNKNOWN INDICATION
     Route: 048
     Dates: start: 20101223
  8. INVEGA SUSTENNA [Suspect]
     Active Substance: PALIPERIDONE PALMITATE
     Indication: PRODUCT USED FOR UNKNOWN INDICATION
     Route: 030
  9. RISPERIDONE. [Suspect]
     Active Substance: RISPERIDONE
     Indication: PRODUCT USED FOR UNKNOWN INDICATION
     Route: 048
     Dates: start: 20101211
  10. RISPERDAL [Suspect]
     Active Substance: RISPERIDONE
     Indication: BIPOLAR DISORDER
     Dosage: VARYING DOSES 0.5 AND 1 MG
     Route: 048
     Dates: start: 200509, end: 200807
  11. SEROQUEL [Suspect]
     Active Substance: QUETIAPINE FUMARATE
     Indication: BIPOLAR DISORDER
     Dosage: VARYING DOSES 5 - 10 MG
     Route: 048
     Dates: start: 200901, end: 201011
  12. LAMICTAL [Suspect]
     Active Substance: LAMOTRIGINE
     Indication: PRODUCT USED FOR UNKNOWN INDICATION
     Dosage: VARYING DOSES 5 - 10 MG
     Route: 048
     Dates: start: 20070508

REACTIONS (4)
  - Emotional disorder [Unknown]
  - Depression [Unknown]
  - Obesity [Unknown]
  - Gynaecomastia [Unknown]
